FAERS Safety Report 5725752-X (Version None)
Quarter: 2008Q2

REPORT INFORMATION
  Report Type: 
  Country: None (occurrence: None)
  Receive Date: 20080429
  Receipt Date: 20080415
  Transmission Date: 20081010
  Serious: Yes (Other)
  Sender: FDA-Public Use
  Company Number: US-JNJFOC-20080304972

PATIENT
  Age: 79 Year
  Sex: Female
  Weight: 112.4 kg

DRUGS (3)
  1. DACOGEN [Suspect]
     Indication: MYELODYSPLASTIC SYNDROME
     Dosage: 35 MG, IN 24 HR, INTRAVENOUS
     Route: 042
     Dates: start: 20080313
  2. CALTRATE (CALCIUM CARBONATE) [Concomitant]
  3. AVALIDE (KARVEA HCT) [Concomitant]

REACTIONS (11)
  - ALANINE AMINOTRANSFERASE INCREASED [None]
  - ASPARTATE AMINOTRANSFERASE INCREASED [None]
  - BACK PAIN [None]
  - HAEMATOCRIT DECREASED [None]
  - HAEMOGLOBIN DECREASED [None]
  - IMMUNE SYSTEM DISORDER [None]
  - LUNG INFILTRATION [None]
  - NAUSEA [None]
  - PLEURAL EFFUSION [None]
  - PNEUMONIA [None]
  - VOMITING [None]
